FAERS Safety Report 5775539-7 (Version None)
Quarter: 2008Q2

REPORT INFORMATION
  Report Type: 
  Country: None (occurrence: None)
  Receive Date: 20080612
  Receipt Date: 20080528
  Transmission Date: 20081010
  Serious: Yes (Death, Other)
  Sender: FDA-Public Use
  Company Number: 2007002545

PATIENT
  Age: 60 Year
  Sex: Male

DRUGS (11)
  1. TARCEVA [Suspect]
     Indication: LUNG NEOPLASM MALIGNANT
     Dosage: (100 MG,QD), ORAL
     Route: 048
     Dates: start: 20071210, end: 20080303
  2. INNOHEP [Concomitant]
  3. OXYCONTIN [Concomitant]
  4. OXYCODONE HCL [Concomitant]
  5. BETAPRED [Concomitant]
  6. GABEPENTIN [Concomitant]
  7. OMEPRAZOLE [Concomitant]
  8. MOVICOL (NULYTELY) [Concomitant]
  9. ZOPICLON [Concomitant]
  10. LAXOBERAL [Concomitant]
  11. ACETAMINOPHEN [Concomitant]

REACTIONS (2)
  - DISEASE PROGRESSION [None]
  - EMBOLISM [None]
